FAERS Safety Report 15935228 (Version 2)
Quarter: 2019Q2

REPORT INFORMATION
  Report Type: Spontaneous
  Country: US (occurrence: US)
  Receive Date: 20190207
  Receipt Date: 20190412
  Transmission Date: 20190711
  Serious: No
  Sender: FDA-Public Use
  Company Number: US-ASTRAZENECA-2019SE06889

PATIENT
  Age: 1097 Month
  Sex: Male
  Weight: 91.6 kg

DRUGS (2)
  1. OXYGEN. [Concomitant]
     Active Substance: OXYGEN
     Dosage: 3 L/MIN AT NIGHT
  2. SYMBICORT [Suspect]
     Active Substance: BUDESONIDE\FORMOTEROL FUMARATE DIHYDRATE
     Indication: ASTHMA
     Dosage: 160/4.5 MCG 2 PUFFS TWICE PER DAY
     Route: 055

REACTIONS (6)
  - Hypertension [Unknown]
  - Blood cholesterol increased [Unknown]
  - Device issue [Unknown]
  - Wrong technique in product usage process [Unknown]
  - Pulmonary congestion [Recovering/Resolving]
  - Intentional device misuse [Unknown]

NARRATIVE: CASE EVENT DATE: 201812
